FAERS Safety Report 25844819 (Version 1)
Quarter: 2025Q3

REPORT INFORMATION
  Report Type: Report from Study
  Country: CA (occurrence: CA)
  Receive Date: 20250925
  Receipt Date: 20250925
  Transmission Date: 20251020
  Serious: Yes (Other)
  Sender: ACCORD
  Company Number: None

PATIENT
  Age: 61 Year
  Sex: Female

DRUGS (3)
  1. METHOTREXATE [Suspect]
     Active Substance: METHOTREXATE
     Indication: Product used for unknown indication
  2. ADALIMUMAB [Suspect]
     Active Substance: ADALIMUMAB
     Indication: Rheumatoid arthritis
     Route: 058
  3. PREDNISONE [Concomitant]
     Active Substance: PREDNISONE
     Indication: Product used for unknown indication

REACTIONS (13)
  - Atrial fibrillation [Unknown]
  - Chronic sinusitis [Unknown]
  - Gastroenteritis viral [Unknown]
  - Nausea [Unknown]
  - Haematuria [Unknown]
  - Rheumatoid arthritis [Unknown]
  - Influenza like illness [Unknown]
  - Vomiting [Unknown]
  - Pneumonia [Unknown]
  - Therapy partial responder [Unknown]
  - Off label use [Unknown]
  - Bronchitis [Unknown]
  - Diarrhoea [Unknown]
